FAERS Safety Report 12961913 (Version 2)
Quarter: 2017Q1

REPORT INFORMATION
  Report Type: Report from Study
  Country: AU (occurrence: AU)
  Receive Date: 20161121
  Receipt Date: 20170331
  Transmission Date: 20170428
  Serious: Yes (Life-Threatening, Hospitalization, Disabling, Other)
  Sender: FDA-Public Use
  Company Number: AU-009507513-1611AUS004158

PATIENT
  Age: 67 Year
  Sex: Male
  Weight: 111 kg

DRUGS (6)
  1. TEMOZOLOMIDE. [Suspect]
     Active Substance: TEMOZOLOMIDE
     Indication: GLIOBLASTOMA MULTIFORME
     Dosage: 75 MG, QD
     Route: 048
     Dates: start: 20160914, end: 20161018
  2. KEPPRA [Concomitant]
     Active Substance: LEVETIRACETAM
     Indication: CONVULSION PROPHYLAXIS
     Dosage: 1 G, BID
     Route: 048
     Dates: start: 20160928
  3. WARFARIN [Concomitant]
     Active Substance: WARFARIN
     Indication: DEEP VEIN THROMBOSIS
     Dosage: 4 MG, QD
     Route: 048
     Dates: start: 20160909
  4. ATACAND [Concomitant]
     Active Substance: CANDESARTAN CILEXETIL
     Indication: HYPERTENSION
     Dosage: 8 MG, QD
     Route: 048
     Dates: start: 2006
  5. PANTOPRAZOLE [Concomitant]
     Active Substance: PANTOPRAZOLE SODIUM
     Indication: GASTROOESOPHAGEAL REFLUX DISEASE
     Dosage: 40 MG, QD
     Route: 048
     Dates: start: 2015
  6. DEXAMETHASONE. [Concomitant]
     Active Substance: DEXAMETHASONE
     Indication: GLIOBLASTOMA MULTIFORME
     Dosage: 2 MG, QD
     Route: 048
     Dates: start: 20160809, end: 20161021

REACTIONS (2)
  - Herpes simplex encephalitis [Recovered/Resolved]
  - Seizure [Recovered/Resolved]

NARRATIVE: CASE EVENT DATE: 20161019
